FAERS Safety Report 5679654-8 (Version None)
Quarter: 2008Q1

REPORT INFORMATION
  Report Type: 
  Country: None (occurrence: None)
  Receive Date: 20080325
  Receipt Date: 20080318
  Transmission Date: 20080703
  Serious: Yes (Hospitalization)
  Sender: FDA-Public Use
  Company Number: US-GILEAD-2008-0015769

PATIENT
  Sex: Male

DRUGS (9)
  1. LETAIRIS [Suspect]
     Indication: COR PULMONALE CHRONIC
     Route: 048
     Dates: start: 20070824
  2. LIPITOR [Concomitant]
     Route: 048
  3. REGLAN [Concomitant]
     Route: 048
  4. ACTOS [Concomitant]
     Route: 048
  5. PREDNISONE TAB [Concomitant]
     Route: 048
  6. FLOMAX [Concomitant]
     Route: 048
  7. HUMALOG [Concomitant]
     Dosage: 100 U/ML
  8. LANTUS [Concomitant]
     Dosage: 100 U/ML
  9. CYCLOPHOSPHAMIDE [Concomitant]
     Route: 048

REACTIONS (1)
  - CATHETERISATION CARDIAC [None]
